FAERS Safety Report 8382566-2 (Version None)
Quarter: 2012Q2

REPORT INFORMATION
  Report Type: 
  Country: None (occurrence: None)
  Receive Date: 20120524
  Receipt Date: 20120521
  Transmission Date: 20120825
  Serious: Yes (Death, Hospitalization)
  Sender: FDA-Public Use
  Company Number: CH-ELI_LILLY_AND_COMPANY-CH201203005267

PATIENT
  Sex: Male

DRUGS (16)
  1. BEVACIZUMAB [Suspect]
     Indication: NON-SMALL CELL LUNG CANCER
     Dosage: 500 MG, EVERY 3 WEEKS
     Route: 042
     Dates: start: 20111118, end: 20120126
  2. VITAMIN B-12 [Concomitant]
  3. TRAZODONE HCL [Concomitant]
     Dosage: 100 MG, QD
  4. TRANSIPEG [Concomitant]
  5. BEVACIZUMAB [Suspect]
     Dosage: 450 MG, EVERY 3 WEEKS
     Route: 042
     Dates: start: 20120215, end: 20120307
  6. SERTRALINE HYDROCHLORIDE [Concomitant]
     Dosage: 100 MG, UNK
     Route: 048
     Dates: start: 20111109, end: 20120430
  7. PASPERTIN [Concomitant]
  8. PEMETREXED [Suspect]
     Indication: NON-SMALL CELL LUNG CANCER
     Dosage: 950 MG, EVERY 3 WEEKS
     Route: 042
     Dates: start: 20111118, end: 20120126
  9. PEMETREXED [Suspect]
     Dosage: 900 MG, EVERY 3 WEEKS
     Route: 042
     Dates: start: 20120215, end: 20120307
  10. PEMETREXED [Suspect]
     Dosage: 700 MG, EVERY 3 WEEKS
     Route: 042
     Dates: start: 20120403
  11. ACETAMINOPHEN [Concomitant]
     Dosage: 3 G, UNK
     Dates: start: 20111109, end: 20120430
  12. FOLIC ACID [Concomitant]
     Dosage: 1 MG, UNK
     Route: 048
     Dates: start: 20111109, end: 20120430
  13. LAXOBERON [Concomitant]
     Dosage: UNK
     Route: 048
     Dates: start: 20120215, end: 20120430
  14. CARBOPLATIN [Suspect]
     Indication: NON-SMALL CELL LUNG CANCER
     Dosage: 650 MG, EVERY 3 WEEKS
     Route: 042
     Dates: start: 20111118, end: 20120126
  15. TRAZODONE HCL [Concomitant]
     Dosage: 50 MG, UNK
     Route: 048
     Dates: start: 20111109, end: 20120430
  16. MORPHINE [Concomitant]

REACTIONS (4)
  - ASTHENIA [None]
  - ATRIAL FLUTTER [None]
  - FATIGUE [None]
  - HYPOPHAGIA [None]
